FAERS Safety Report 8335940-4 (Version None)
Quarter: 2012Q2

REPORT INFORMATION
  Report Type: 
  Country: None (occurrence: None)
  Receive Date: 20120501
  Receipt Date: 20120501
  Transmission Date: 20120825
  Serious: Yes (Hospitalization)
  Sender: FDA-Public Use
  Company Number: None

PATIENT
  Age: 70 Year
  Sex: Female
  Weight: 66.36 kg

DRUGS (13)
  1. COUMADIN [Suspect]
     Indication: PULMONARY EMBOLISM
     Dosage: D/CED 2 DAYS PRIOR TO ADMIT CHRONIC
  2. PAXIL [Concomitant]
  3. CALCIUM CARBONATE [Concomitant]
  4. LYRICA [Concomitant]
  5. SINGULAIR [Concomitant]
  6. POTASSIUM CHLORIDE [Concomitant]
  7. LOVENOX [Suspect]
     Indication: PULMONARY EMBOLISM
     Dosage: 60MG Q12HR SQ RECENT
     Route: 058
  8. CHOLECALCIFEROL [Concomitant]
  9. PREDNISONE [Suspect]
     Indication: VASCULITIS
     Dosage: 5MG QD PO CHRONIC
     Route: 048
  10. OSTEO-BIFLEX [Concomitant]
  11. FORTICAL [Concomitant]
  12. PLAQUENIL [Concomitant]
  13. ADVAIR DISKUS 100/50 [Concomitant]

REACTIONS (3)
  - HAEMATEMESIS [None]
  - GASTROINTESTINAL HAEMORRHAGE [None]
  - GASTRITIS EROSIVE [None]
